FAERS Safety Report 7408510-X (Version None)
Quarter: 2011Q2

REPORT INFORMATION
  Report Type: 
  Country: None (occurrence: None)
  Receive Date: 20110412
  Receipt Date: 20101029
  Transmission Date: 20111010
  Serious: Yes (Hospitalization)
  Sender: FDA-Public Use
  Company Number: US-BAYER-201028618NA

PATIENT
  Age: 24 Year
  Sex: Female
  Weight: 76 kg

DRUGS (6)
  1. IBUPROFEN [Concomitant]
  2. PROMETHAZINE [Concomitant]
     Dosage: UNK UNK, PRN
  3. YAZ [Suspect]
     Indication: PRODUCT USED FOR UNKNOWN INDICATION
     Dosage: UNK UNK, UNK
     Route: 048
     Dates: start: 20081201, end: 20090101
  4. NEXIUM [Concomitant]
     Indication: GASTROOESOPHAGEAL REFLUX DISEASE
     Dosage: UNK
     Dates: start: 20040101
  5. YASMIN [Suspect]
     Indication: PRODUCT USED FOR UNKNOWN INDICATION
     Dosage: UNK UNK, UNK
     Route: 048
     Dates: start: 20061001, end: 20080101
  6. ZOLOFT [Concomitant]
     Indication: ANXIETY
     Dosage: UNK
     Dates: start: 20040101

REACTIONS (6)
  - NAUSEA [None]
  - BILIARY DYSKINESIA [None]
  - CHOLECYSTITIS [None]
  - ABDOMINAL PAIN UPPER [None]
  - MENTAL DISORDER [None]
  - VOMITING [None]
